FAERS Safety Report 9675347 (Version 2)
Quarter: 2013Q4

REPORT INFORMATION
  Report Type: Spontaneous
  Country: US (occurrence: US)
  Receive Date: 20131107
  Receipt Date: 20131220
  Transmission Date: 20140711
  Serious: No
  Sender: FDA-Public Use
  Company Number: US-PFIZER INC-2013317065

PATIENT
  Age: 40 Year
  Sex: Female

DRUGS (3)
  1. PRISTIQ [Suspect]
     Indication: MAJOR DEPRESSION
     Dosage: 50 MG, 1X/DAY
     Route: 048
     Dates: start: 20130801
  2. PRISTIQ [Suspect]
     Indication: ANXIETY
  3. XANAX [Concomitant]
     Dosage: 0.5 MG, 3X/DAY
     Route: 048

REACTIONS (1)
  - Diarrhoea [Not Recovered/Not Resolved]
